APPROVED DRUG PRODUCT: ATENOLOL AND CHLORTHALIDONE
Active Ingredient: ATENOLOL; CHLORTHALIDONE
Strength: 50MG;25MG
Dosage Form/Route: TABLET;ORAL
Application: A213302 | Product #001 | TE Code: AB
Applicant: UNICHEM LABORATORIES LTD
Approved: Nov 25, 2020 | RLD: No | RS: No | Type: RX